FAERS Safety Report 6383559-7 (Version None)
Quarter: 2009Q4

REPORT INFORMATION
  Report Type: 
  Country: None (occurrence: None)
  Receive Date: 20091001
  Receipt Date: 20090918
  Transmission Date: 20100525
  Serious: Yes (Other)
  Sender: FDA-Public Use
  Company Number: US-ROCHE-658100

PATIENT
  Sex: Male

DRUGS (2)
  1. PEGASYS [Suspect]
     Indication: HEPATITIS C
     Dosage: FORM: PRE-FILLED SYRINGES
     Route: 065
     Dates: start: 20090605, end: 20090904
  2. RIBAVIRIN [Suspect]
     Indication: HEPATITIS C
     Route: 065
     Dates: start: 20090605, end: 20090904

REACTIONS (5)
  - DYSPHAGIA [None]
  - DYSPNOEA [None]
  - FEELING COLD [None]
  - RASH PRURITIC [None]
  - TRANSFUSION [None]
